FAERS Safety Report 8301607-1 (Version None)
Quarter: 2012Q2

REPORT INFORMATION
  Report Type: 
  Country: None (occurrence: None)
  Receive Date: 20120420
  Receipt Date: 20120410
  Transmission Date: 20120825
  Serious: Yes (Hospitalization, Other)
  Sender: FDA-Public Use
  Company Number: DE-ROCHE-1047662

PATIENT
  Sex: Male
  Weight: 80 kg

DRUGS (5)
  1. ACTEMRA [Suspect]
     Route: 042
     Dates: start: 20111201
  2. ACTEMRA [Suspect]
     Route: 042
     Dates: start: 20111104
  3. ACTEMRA [Suspect]
     Indication: RHEUMATOID ARTHRITIS
     Route: 042
     Dates: start: 20100306
  4. ACTEMRA [Suspect]
     Route: 042
     Dates: start: 20120209
  5. ACTEMRA [Suspect]
     Route: 042
     Dates: start: 20120112

REACTIONS (2)
  - FAECES PALE [None]
  - SINUSITIS [None]
